FAERS Safety Report 6303116-8 (Version None)
Quarter: 2009Q3

REPORT INFORMATION
  Report Type: 
  Country: None (occurrence: None)
  Receive Date: 20090810
  Receipt Date: 20090714
  Transmission Date: 20100115
  Serious: Yes (Death, Hospitalization)
  Sender: FDA-Public Use
  Company Number: US-ROCHE-644872

PATIENT
  Age: 45 Year
  Sex: Male

DRUGS (7)
  1. MYCOPHENOLATE MOFETIL [Suspect]
     Route: 065
     Dates: start: 20070701
  2. SULFAMETHOXAZOLE AND TRIMETHOPRIM [Suspect]
     Route: 065
  3. GANCICLOVIR [Suspect]
     Indication: ANTI-INFECTIVE THERAPY
     Route: 065
  4. PROGRAF [Suspect]
     Dosage: TROUGH LEVELS OF 5-10 NG/ML
     Route: 065
     Dates: start: 20070701
  5. PROGRAF [Suspect]
     Dosage: STEROID TAPER
     Route: 065
  6. LINEZOLID [Concomitant]
     Dosage: ADMINISTERED ON POST-OPERATIVE DAY 7
  7. PIPERACILLIN SODIUM AND TAZOBACTAM SODIUM [Concomitant]

REACTIONS (18)
  - BACTERAEMIA [None]
  - BRONCHOPULMONARY ASPERGILLOSIS [None]
  - COAGULOPATHY [None]
  - CYTOMEGALOVIRUS HEPATITIS [None]
  - DRUG TOXICITY [None]
  - ENTEROCOCCAL BACTERAEMIA [None]
  - GASTROINTESTINAL HAEMORRHAGE [None]
  - HEPATIC ARTERY THROMBOSIS [None]
  - HYPOTENSION [None]
  - KLEBSIELLA BACTERAEMIA [None]
  - LIVER ABSCESS [None]
  - MULTI-ORGAN FAILURE [None]
  - PANCYTOPENIA [None]
  - PERITONITIS [None]
  - POST PROCEDURAL BILE LEAK [None]
  - RENAL FAILURE ACUTE [None]
  - SEPSIS [None]
  - SEPTIC SHOCK [None]
